FAERS Safety Report 4415286-7 (Version None)
Quarter: 2004Q3

REPORT INFORMATION
  Report Type: 
  Country: None (occurrence: None)
  Receive Date: 20040804
  Receipt Date: 20040604
  Transmission Date: 20050211
  Serious: Yes (Life-Threatening, Hospitalization)
  Sender: FDA-Public Use
  Company Number: DE-BRISTOL-MYERS SQUIBB COMPANY-12604922

PATIENT
  Age: 68 Year
  Sex: Female

DRUGS (4)
  1. CARBOPLATIN [Suspect]
     Indication: OVARIAN CANCER
     Dosage: C1: 640 MG 10-MAR-2004 C2: 650 MG 07-APR-2004 C4: 450 MG 18-JUN-2004 AUC 6
     Route: 042
     Dates: start: 20040505, end: 20040505
  2. CAELYX [Suspect]
     Indication: OVARIAN CANCER
     Dosage: C1: 70 MG 10-MAR-2004 C2: 74 MG 07-APR-2004 C4: 71 MG 18-JUN-2004
     Route: 042
     Dates: start: 20040505, end: 20040505
  3. DEXAMETHASONE [Suspect]
     Indication: NAUSEA
     Dosage: QID/BID 20 MG ON 18-JUN-2004
     Route: 048
     Dates: start: 20040308, end: 20040510
  4. KEVATRIL [Concomitant]
     Indication: NAUSEA

REACTIONS (1)
  - DUODENAL ULCER PERFORATION [None]
